FAERS Safety Report 24624319 (Version 2)
Quarter: 2024Q4

REPORT INFORMATION
  Report Type: Spontaneous
  Country: US (occurrence: US)
  Receive Date: 20241115
  Receipt Date: 20241120
  Transmission Date: 20250114
  Serious: No
  Sender: BIOGEN
  Company Number: US-BIOGEN-2024BI01290368

PATIENT
  Age: 32 Year
  Sex: Male

DRUGS (3)
  1. VUMERITY [Suspect]
     Active Substance: DIROXIMEL FUMARATE
     Indication: Multiple sclerosis
     Dosage: AFTER TITRATING FOR A WEEK, STARTED VUMERITY ANYTIME HE TAKES FULL MAINTENANCE DOSE BUT DIRECTED ...
     Route: 050
     Dates: start: 20241001
  2. VUMERITY [Suspect]
     Active Substance: DIROXIMEL FUMARATE
     Route: 050
     Dates: start: 2024
  3. VUMERITY [Suspect]
     Active Substance: DIROXIMEL FUMARATE
     Dosage: NOW TAKING 1 VUMERITY?CAPSULE A DAY DUE TO PATIENT FEELING SICK
     Route: 050

REACTIONS (4)
  - Asthenia [Unknown]
  - Abdominal discomfort [Unknown]
  - Malaise [Unknown]
  - Flushing [Unknown]

NARRATIVE: CASE EVENT DATE: 20241001
